FAERS Safety Report 17163963 (Version 2)
Quarter: 2019Q4

REPORT INFORMATION
  Report Type: Report from Study
  Country: KR (occurrence: KR)
  Receive Date: 20191217
  Receipt Date: 20191226
  Transmission Date: 20200122
  Serious: Yes (Hospitalization)
  Sender: FDA-Public Use
  Company Number: KR-DSJP-DSJ-2019-149857

PATIENT

DRUGS (6)
  1. EDOXABAN [Suspect]
     Active Substance: EDOXABAN TOSYLATE
     Indication: PRODUCT USED FOR UNKNOWN INDICATION
     Dosage: 30 MG, QD
     Route: 048
     Dates: start: 20181205, end: 20190923
  2. EDOXABAN [Suspect]
     Active Substance: EDOXABAN TOSYLATE
     Dosage: 30 MG, UNK
     Route: 065
     Dates: start: 20191016
  3. VASTINAN MR [Concomitant]
     Dosage: 2 DF, BID
     Route: 048
     Dates: start: 20140715
  4. LANSTON [Concomitant]
     Active Substance: LANSOPRAZOLE
     Dosage: 1 DF, QD
     Route: 048
     Dates: start: 20190821
  5. CONCOR [Concomitant]
     Active Substance: BISOPROLOL FUMARATE
     Dosage: 1 DF, QD
     Route: 048
     Dates: start: 20140715
  6. EDOXABAN [Suspect]
     Active Substance: EDOXABAN TOSYLATE
     Dosage: 30 MG, UNK
     Route: 065
     Dates: start: 20190926, end: 20191010

REACTIONS (1)
  - Colitis ischaemic [Recovered/Resolved]

NARRATIVE: CASE EVENT DATE: 20190920
